FAERS Safety Report 7943497-2 (Version None)
Quarter: 2011Q4

REPORT INFORMATION
  Report Type: 
  Country: None (occurrence: None)
  Receive Date: 20111128
  Receipt Date: 20111116
  Transmission Date: 20120403
  Serious: Yes (Life-Threatening, Hospitalization)
  Sender: FDA-Public Use
  Company Number: US-CELGENEUS-163-21660-11112984

PATIENT
  Age: 44 Year
  Sex: Female
  Weight: 119.58 kg

DRUGS (16)
  1. BENZONATATE [Concomitant]
     Route: 065
  2. DOXORUBICIN HCL [Suspect]
     Dosage: 10 MILLIGRAM/SQ. METER
     Route: 065
     Dates: start: 20110324
  3. GUAIFENESIN [Concomitant]
     Route: 065
  4. CYCLOPHOSPHAMIDE [Suspect]
     Indication: BREAST CANCER
     Dosage: 600 MILLIGRAM/SQ. METER
     Route: 041
     Dates: start: 20110324
  5. ZOLPIDEM [Concomitant]
     Route: 065
  6. CEFEPIME [Concomitant]
     Route: 065
  7. BEVACIZUMAB [Suspect]
     Indication: BREAST CANCER
     Dosage: 10 MILLIGRAM/KILOGRAM
     Route: 041
     Dates: start: 20110324
  8. FAMOTIDINE [Concomitant]
     Route: 065
  9. PROCHLORPERAZINE [Concomitant]
     Route: 065
  10. METOPROLOL TARTRATE [Concomitant]
     Route: 065
  11. ABRAXANE [Suspect]
     Indication: BREAST CANCER
     Dosage: 80 MILLIGRAM/SQ. METER
     Route: 041
     Dates: start: 20110324
  12. BACITRACIN [Concomitant]
     Route: 065
  13. FLUCONAZOLE [Concomitant]
     Route: 065
  14. ACETAMINOPHEN [Concomitant]
     Route: 065
  15. PEGFILGRASTIM [Suspect]
     Dosage: 6 MILLIGRAM
     Route: 065
     Dates: end: 20110825
  16. WHOLE BLOOD [Concomitant]
     Route: 041

REACTIONS (4)
  - ANAEMIA [None]
  - FEBRILE NEUTROPENIA [None]
  - PLATELET COUNT DECREASED [None]
  - WHITE BLOOD CELL COUNT DECREASED [None]
